FAERS Safety Report 6729965-X (Version None)
Quarter: 2010Q2

REPORT INFORMATION
  Report Type: 
  Country: None (occurrence: None)
  Receive Date: 20100518
  Receipt Date: 20100517
  Transmission Date: 20101027
  Serious: Yes (Death, Hospitalization)
  Sender: FDA-Public Use
  Company Number: DE-NAPPMUNDI-DEU-2010-0006221

PATIENT
  Age: 81 Year
  Sex: Male
  Weight: 68 kg

DRUGS (16)
  1. PALLADONE [Suspect]
     Indication: PAIN
     Dosage: 26 MG, QID
     Route: 048
     Dates: start: 20091125, end: 20091229
  2. HYDROMORPHONE HCL [Suspect]
     Indication: PAIN
     Dosage: 32 MG, DAILY
     Route: 048
     Dates: start: 20091213, end: 20091229
  3. SUNITINIB/PLACEBO [Suspect]
     Indication: PROSTATE CANCER
     Dosage: UNK MG, BID
     Route: 048
     Dates: start: 20091217, end: 20100107
  4. PREDNISONE [Suspect]
     Indication: PROSTATE CANCER
     Dosage: 5 MG, BID
     Dates: start: 20091201, end: 20100111
  5. DURAGESIC-100 [Suspect]
     Indication: PAIN
     Dosage: UNK
     Route: 061
     Dates: start: 20091229
  6. MOVICOL                            /01053601/ [Concomitant]
  7. HALDOL [Concomitant]
  8. METAMIZOLE [Concomitant]
  9. LYRICA [Concomitant]
  10. OMEPRAZOLE [Concomitant]
  11. PAROXETIN                          /00830801/ [Concomitant]
  12. METOCLOPRAMIDE [Concomitant]
  13. KEVATRIL [Concomitant]
  14. TAVOR                              /00273201/ [Concomitant]
  15. FUROSEMID                          /00032601/ [Concomitant]
  16. SCOPOLAMINE [Concomitant]

REACTIONS (7)
  - BLOOD CREATININE INCREASED [None]
  - BLOOD SODIUM DECREASED [None]
  - DEHYDRATION [None]
  - HEPATOTOXICITY [None]
  - MALIGNANT NEOPLASM PROGRESSION [None]
  - NARCOTIC INTOXICATION [None]
  - PROSTATE CANCER [None]
